FAERS Safety Report 21967810 (Version 2)
Quarter: 2023Q2

REPORT INFORMATION
  Report Type: Spontaneous
  Country: US (occurrence: None)
  Receive Date: 20230208
  Receipt Date: 20230421
  Transmission Date: 20230722
  Serious: No
  Sender: FDA-Public Use
  Company Number: 2023A028575

PATIENT
  Age: 25675 Day
  Sex: Female
  Weight: 54.4 kg

DRUGS (2)
  1. SYMBICORT [Suspect]
     Active Substance: BUDESONIDE\FORMOTEROL FUMARATE DIHYDRATE
     Indication: Chronic obstructive pulmonary disease
     Dosage: 160/4.5 MCG, TWO INHALATIONS, TWO TIMES A DAY
     Route: 055
     Dates: start: 20230101
  2. SYMBICORT [Suspect]
     Active Substance: BUDESONIDE\FORMOTEROL FUMARATE DIHYDRATE
     Indication: Asthma
     Dosage: 160/4.5 MCG, TWO INHALATIONS, TWO TIMES A DAY
     Route: 055
     Dates: start: 20230101

REACTIONS (10)
  - Dyspnoea [Unknown]
  - Head discomfort [Unknown]
  - Nasal congestion [Unknown]
  - Drug ineffective [Unknown]
  - Incorrect dose administered by device [Unknown]
  - Wrong technique in device usage process [Unknown]
  - Off label use [Unknown]
  - Device use issue [Unknown]
  - Device delivery system issue [Unknown]
  - Device malfunction [Unknown]

NARRATIVE: CASE EVENT DATE: 20230130
